FAERS Safety Report 13179691 (Version 1)
Quarter: 2017Q1

REPORT INFORMATION
  Report Type: Spontaneous
  Country: US (occurrence: US)
  Receive Date: 20170202
  Receipt Date: 20170202
  Transmission Date: 20170428
  Serious: No
  Sender: FDA-Public Use
  Company Number: US-ASTRAZENECA-2017SE08614

PATIENT
  Age: 70 Year
  Sex: Male
  Weight: 72.6 kg

DRUGS (13)
  1. GENTODUETO [Concomitant]
     Indication: TYPE 2 DIABETES MELLITUS
     Route: 048
     Dates: start: 201612, end: 201701
  2. TRIGENTA [Concomitant]
     Active Substance: BETAMETHASONE DIPROPIONATE\CLOTRIMAZOLE\GENTAMICIN SULFATE
     Indication: TYPE 2 DIABETES MELLITUS
     Route: 048
     Dates: start: 201701
  3. GENERIC FOR COREG [Concomitant]
     Indication: HYPERTENSION
     Route: 048
     Dates: start: 2015
  4. MAGNESIUM [Concomitant]
     Active Substance: MAGNESIUM
     Dosage: ONCE DAILY
     Route: 048
  5. ZINC. [Concomitant]
     Active Substance: ZINC
     Dosage: ONCE DAILY
     Route: 048
  6. METFORMIN [Concomitant]
     Active Substance: METFORMIN HYDROCHLORIDE
     Indication: TYPE 2 DIABETES MELLITUS
     Route: 048
     Dates: start: 201701
  7. FARXIGA [Suspect]
     Active Substance: DAPAGLIFLOZIN PROPANEDIOL
     Indication: TYPE 2 DIABETES MELLITUS
     Route: 048
     Dates: start: 2015, end: 2015
  8. AMLODIPINE [Concomitant]
     Active Substance: AMLODIPINE BESYLATE
     Indication: HYPERTENSION
     Route: 048
  9. FLOMAX [Concomitant]
     Active Substance: TAMSULOSIN HYDROCHLORIDE
     Indication: BENIGN PROSTATIC HYPERPLASIA
     Route: 048
     Dates: start: 2015
  10. VITAMIN B12 [Concomitant]
     Active Substance: CYANOCOBALAMIN
     Dosage: ONCE DAILY
     Route: 048
  11. B6 [Concomitant]
     Active Substance: PYRIDOXINE HYDROCHLORIDE
     Dosage: ONCE DAILY
     Route: 048
  12. FARXIGA [Suspect]
     Active Substance: DAPAGLIFLOZIN PROPANEDIOL
     Indication: TYPE 2 DIABETES MELLITUS
     Route: 048
     Dates: start: 201612
  13. XIGDUO XR [Suspect]
     Active Substance: DAPAGLIFLOZIN PROPANEDIOL\METFORMIN HYDROCHLORIDE
     Indication: TYPE 2 DIABETES MELLITUS
     Dosage: 5MG/1000MG TWO TIMES A DAY
     Route: 048
     Dates: start: 201612, end: 201612

REACTIONS (9)
  - Diabetes mellitus inadequate control [Not Recovered/Not Resolved]
  - Off label use [Unknown]
  - Micturition urgency [Unknown]
  - Nasal congestion [Unknown]
  - Dysuria [Unknown]
  - Product use issue [Unknown]
  - Urinary incontinence [Unknown]
  - Intentional product misuse [Unknown]
  - Blood glucose decreased [Not Recovered/Not Resolved]

NARRATIVE: CASE EVENT DATE: 2015
